FAERS Safety Report 9352438 (Version 4)
Quarter: 2013Q3

REPORT INFORMATION
  Report Type: Spontaneous
  Country: US (occurrence: US)
  Receive Date: 20130617
  Receipt Date: 20130723
  Transmission Date: 20140515
  Serious: Yes (Hospitalization)
  Sender: FDA-Public Use
  Company Number: US-BAXTER-2013BAX006523

PATIENT
  Age: 83 Year
  Sex: Male

DRUGS (3)
  1. DIANEAL LOW CALCIUM [Suspect]
     Indication: PERITONEAL DIALYSIS
     Route: 033
     Dates: start: 2010
  2. DIANEAL LOW CALCIUM [Suspect]
     Indication: PERITONEAL DIALYSIS
     Route: 033
     Dates: start: 2010
  3. EXTRANEAL [Suspect]
     Indication: PERITONEAL DIALYSIS
     Route: 033
     Dates: start: 2010

REACTIONS (9)
  - Diabetic complication [Recovered/Resolved]
  - Fall [Recovered/Resolved]
  - Limb injury [Recovering/Resolving]
  - Skin wound [Recovering/Resolving]
  - Muscular weakness [Not Recovered/Not Resolved]
  - Chills [Recovered/Resolved]
  - Local swelling [Not Recovered/Not Resolved]
  - Malaise [Recovered/Resolved]
  - Pyrexia [Recovered/Resolved]
